FAERS Safety Report 15557804 (Version 4)
Quarter: 2019Q1

REPORT INFORMATION
  Report Type: Report from Study
  Country: US (occurrence: US)
  Receive Date: 20181027
  Receipt Date: 20190326
  Transmission Date: 20190417
  Serious: Yes (Life-Threatening, Hospitalization)
  Sender: FDA-Public Use
  Company Number: US-UCBSA-2018046512

PATIENT
  Age: 76 Year
  Sex: Male

DRUGS (2)
  1. LACOSAMIDE. [Suspect]
     Active Substance: LACOSAMIDE
     Indication: SEIZURE
     Dosage: 50 MG, 3X/DAY (TID)
  2. LACOSAMIDE. [Suspect]
     Active Substance: LACOSAMIDE
     Indication: PARTIAL SEIZURES
     Dosage: 100 MG, 3X/DAY (TID)
     Dates: start: 20181018

REACTIONS (5)
  - Seizure [Not Recovered/Not Resolved]
  - Intentional product misuse [Unknown]
  - Amnesia [Not Recovered/Not Resolved]
  - Drug ineffective [Unknown]
  - Product dose omission [Unknown]

NARRATIVE: CASE EVENT DATE: 2018
